FAERS Safety Report 18739365 (Version 1)
Quarter: 2021Q1

REPORT INFORMATION
  Report Type: Spontaneous
  Country: US (occurrence: US)
  Receive Date: 20210114
  Receipt Date: 20210114
  Transmission Date: 20210419
  Serious: No
  Sender: FDA-Public Use
  Company Number: NVSC2021US006636

PATIENT
  Age: 55 Year
  Sex: Female

DRUGS (1)
  1. XIIDRA [Suspect]
     Active Substance: LIFITEGRAST
     Indication: DRY EYE
     Dosage: 2 GTT, BID ((24/26 MG, 1.6X10^8 CAR?POSITIVE VIABLE T CELLS OR OTHER))
     Route: 047

REACTIONS (2)
  - Vision blurred [Unknown]
  - Eye irritation [Unknown]
